FAERS Safety Report 9150166 (Version 1)
Quarter: 2013Q1

REPORT INFORMATION
  Report Type: Report from Study
  Country: US (occurrence: US)
  Receive Date: 20130308
  Receipt Date: 20130308
  Transmission Date: 20140127
  Serious: Yes (Hospitalization)
  Sender: FDA-Public Use
  Company Number: US-JNJFOC-20130300166

PATIENT
  Age: 15 Year
  Sex: Male
  Weight: 71.7 kg

DRUGS (34)
  1. REMICADE [Suspect]
     Indication: INFLAMMATORY BOWEL DISEASE
     Route: 042
     Dates: start: 20050807, end: 20100507
  2. IVIG [Concomitant]
     Route: 065
     Dates: start: 20080808
  3. CALCIUM [Concomitant]
     Route: 065
  4. MULTIVITAMINS [Concomitant]
     Route: 065
  5. VITAMIN D [Concomitant]
     Route: 065
  6. MAGNESIUM [Concomitant]
     Route: 065
  7. COENZYME Q10 [Concomitant]
     Route: 065
  8. CREATINE [Concomitant]
     Route: 065
  9. I V FLUIDS [Concomitant]
     Route: 065
  10. FLUDROCORTISONE [Concomitant]
     Route: 065
  11. FLUTICASONE [Concomitant]
     Route: 065
  12. FOLIC ACID [Concomitant]
     Route: 065
  13. GABAPENTIN [Concomitant]
     Route: 065
  14. LEVALBUTEROL [Concomitant]
     Route: 065
  15. LEVOCARNITINE [Concomitant]
     Route: 065
  16. ALPHA LIPOIC ACID [Concomitant]
     Route: 065
  17. MIDODRINE [Concomitant]
     Route: 065
  18. 5-ASA [Concomitant]
     Route: 048
  19. MODAFINIL [Concomitant]
     Route: 065
  20. NALTREXONE [Concomitant]
     Route: 065
  21. NEXIUM [Concomitant]
     Route: 065
  22. ONDANSETRON [Concomitant]
     Route: 065
  23. POLYETHYLENE GLYCOL [Concomitant]
     Route: 065
  24. RIBOFLAVIN [Concomitant]
     Route: 065
  25. SELENIUM [Concomitant]
     Route: 065
  26. TUMS [Concomitant]
     Route: 065
  27. TYLENOL DYE FREE [Concomitant]
     Route: 065
  28. VITAMINE E [Concomitant]
     Route: 065
  29. VITAMIN C [Concomitant]
     Route: 065
  30. ATENOLOL [Concomitant]
     Route: 065
  31. AZELASTINE [Concomitant]
     Route: 045
  32. BENADRYL [Concomitant]
     Route: 065
  33. BUDESONIDE [Concomitant]
     Route: 055
  34. FIORICET [Concomitant]
     Route: 065

REACTIONS (1)
  - Gastrointestinal viral infection [Recovered/Resolved]
